FAERS Safety Report 7557864-2 (Version None)
Quarter: 2011Q2

REPORT INFORMATION
  Report Type: 
  Country: None (occurrence: None)
  Receive Date: 20110620
  Receipt Date: 20110609
  Transmission Date: 20111010
  Serious: Yes (Other)
  Sender: FDA-Public Use
  Company Number: GB-ASTRAZENECA-2011SE35356

PATIENT
  Age: 51 Year
  Sex: Male

DRUGS (3)
  1. QUETIAPINE [Suspect]
     Route: 048
     Dates: start: 20110401
  2. VENLAFAXINE [Suspect]
     Route: 048
     Dates: start: 20110101
  3. SIMVASTATIN [Concomitant]
     Route: 048

REACTIONS (1)
  - VENTRICULAR EXTRASYSTOLES [None]
